FAERS Safety Report 17072021 (Version 1)
Quarter: 2019Q4

REPORT INFORMATION
  Report Type: Spontaneous
  Country: US (occurrence: US)
  Receive Date: 20191123
  Receipt Date: 20191123
  Transmission Date: 20200122
  Serious: Yes (Life-Threatening, Other)
  Sender: FDA-Public Use
  Company Number: None

PATIENT
  Age: 43 Year
  Sex: Male
  Weight: 96.3 kg

DRUGS (6)
  1. TRINTELLIX [Suspect]
     Active Substance: VORTIOXETINE HYDROBROMIDE
     Indication: DEPRESSION
     Dosage: ?          QUANTITY:1 TABLET(S);?
     Route: 048
     Dates: start: 20191119, end: 20191122
  2. OMEPRAZOLE 40MG [Concomitant]
     Active Substance: OMEPRAZOLE
  3. NALTEXONE [Concomitant]
  4. LEXAPRO ETODOLAC [Concomitant]
  5. LORAZEPAN [Concomitant]
     Active Substance: LORAZEPAM
  6. ANTACID-TUMS [Concomitant]

REACTIONS (7)
  - Conversion disorder [None]
  - Violence-related symptom [None]
  - Aggression [None]
  - Anxiety [None]
  - Anger [None]
  - Crying [None]
  - Mood swings [None]

NARRATIVE: CASE EVENT DATE: 20191122
